FAERS Safety Report 25177886 (Version 1)
Quarter: 2025Q2

REPORT INFORMATION
  Report Type: Spontaneous
  Country: US (occurrence: None)
  Receive Date: 20250408
  Receipt Date: 20250408
  Transmission Date: 20250716
  Serious: Yes (Other)
  Sender: FDA-CTU
  Company Number: None

PATIENT
  Sex: Male

DRUGS (11)
  1. ABIRATERONE ACETATE [Suspect]
     Active Substance: ABIRATERONE ACETATE
     Indication: Prostate cancer
     Dosage: OTHER QUANTITY : TAKE 2 TABLES;?FREQUENCY : DAILY;?
     Route: 048
     Dates: start: 20220224
  2. CALCIUM [Concomitant]
     Active Substance: CALCIUM
  3. COENZYME Q10 [Concomitant]
     Active Substance: DIETARY SUPPLEMENT\UBIDECARENONE
  4. CRANBERRY [Concomitant]
     Active Substance: CRANBERRY
  5. ELIGARD [Concomitant]
     Active Substance: LEUPROLIDE ACETATE
  6. ELIQUIS [Concomitant]
     Active Substance: APIXABAN
  7. FISH OIL [Concomitant]
     Active Substance: FISH OIL
  8. FLOMAX [Concomitant]
     Active Substance: TAMSULOSIN HYDROCHLORIDE
  9. PREDNISONE [Concomitant]
     Active Substance: PREDNISONE
  10. RED YEAST [Concomitant]
     Active Substance: RED YEAST
  11. VITAMIN B12 [Concomitant]
     Active Substance: CYANOCOBALAMIN

REACTIONS (4)
  - Loss of therapeutic response [None]
  - Drug ineffective [None]
  - Malignant neoplasm progression [None]
  - Metastatic neoplasm [None]
